FAERS Safety Report 8499519-6 (Version None)
Quarter: 2012Q2

REPORT INFORMATION
  Report Type: 
  Country: None (occurrence: None)
  Receive Date: 20120629
  Receipt Date: 20120614
  Transmission Date: 20120825
  Serious: Yes (Other)
  Sender: FDA-Public Use
  Company Number: DSM-2012-00676

PATIENT
  Sex: Female

DRUGS (1)
  1. SEVIKAR(OLMESARTAN MEDOXOMIL, AMLODIPINE BESILATE)(TABLER)(OLMESARTAN [Suspect]
     Indication: PRODUCT USED FOR UNKNOWN INDICATION
     Dosage: ORAL
     Route: 048

REACTIONS (1)
  - DYSPNOEA [None]
